FAERS Safety Report 24297663 (Version 1)
Quarter: 2024Q3

REPORT INFORMATION
  Report Type: Spontaneous
  Country: CN (occurrence: CN)
  Receive Date: 20240909
  Receipt Date: 20240909
  Transmission Date: 20241017
  Serious: Yes (Hospitalization, Other)
  Sender: AUROBINDO
  Company Number: CN-AUROBINDO-AUR-APL-2024-044628

PATIENT
  Age: 54 Year
  Sex: Female
  Weight: 55 kg

DRUGS (12)
  1. EVOMELA [Suspect]
     Active Substance: MELPHALAN HYDROCHLORIDE
     Indication: Primary mediastinal large B-cell lymphoma
     Dosage: 200 MILLIGRAM, ONCE A DAY [200 MG, 119MG/M^2, D-2, QD; IV DRIP]
     Route: 041
     Dates: start: 20240813, end: 20240813
  2. EVOMELA [Suspect]
     Active Substance: MELPHALAN HYDROCHLORIDE
     Indication: Diffuse large B-cell lymphoma
  3. EVOMELA [Suspect]
     Active Substance: MELPHALAN HYDROCHLORIDE
     Indication: Autologous haematopoietic stem cell transplant
  4. ETOPOSIDE [Suspect]
     Active Substance: ETOPOSIDE
     Indication: Primary mediastinal large B-cell lymphoma
     Dosage: 250 MILLIGRAM, ONCE A DAY [250 MG, PUMP INJECTION, QD, D-6 TO D-3; THE TOTALDOSE OF 1.0 G, 600 MG/M^
     Route: 042
     Dates: start: 20240809, end: 20240812
  5. ETOPOSIDE [Suspect]
     Active Substance: ETOPOSIDE
     Indication: Diffuse large B-cell lymphoma
  6. ETOPOSIDE [Suspect]
     Active Substance: ETOPOSIDE
     Indication: Autologous haematopoietic stem cell transplant
  7. SEMUSTINE [Suspect]
     Active Substance: SEMUSTINE
     Indication: Primary mediastinal large B-cell lymphoma
     Dosage: 450 MILLIGRAM, ONCE A DAY [450 MG, 267 MG/M^2, QD, D-7; ORAL USE]
     Route: 048
     Dates: start: 20240808, end: 20240808
  8. SEMUSTINE [Suspect]
     Active Substance: SEMUSTINE
     Indication: Diffuse large B-cell lymphoma
  9. SEMUSTINE [Suspect]
     Active Substance: SEMUSTINE
     Indication: Autologous haematopoietic stem cell transplant
  10. CYTARABINE [Suspect]
     Active Substance: CYTARABINE
     Indication: Primary mediastinal large B-cell lymphoma
     Dosage: 250 MILLIGRAM, TWO TIMES A DAY
     Route: 041
     Dates: start: 20240809, end: 20240812
  11. CYTARABINE [Suspect]
     Active Substance: CYTARABINE
     Indication: Diffuse large B-cell lymphoma
  12. CYTARABINE [Suspect]
     Active Substance: CYTARABINE
     Indication: Autologous haematopoietic stem cell transplant

REACTIONS (1)
  - Agranulocytosis [Recovering/Resolving]

NARRATIVE: CASE EVENT DATE: 20240814
